FAERS Safety Report 15607763 (Version 3)
Quarter: 2019Q1

REPORT INFORMATION
  Report Type: Spontaneous
  Country: NO (occurrence: NO)
  Receive Date: 20181112
  Receipt Date: 20190121
  Transmission Date: 20190417
  Serious: Yes (Other)
  Sender: FDA-Public Use
  Company Number: NO-PFIZER INC-2018458169

PATIENT
  Age: 58 Year
  Sex: Male

DRUGS (1)
  1. DOLCONTIN [Suspect]
     Active Substance: MORPHINE
     Dosage: UNK

REACTIONS (2)
  - Withdrawal syndrome [Unknown]
  - Drug abuser [Unknown]
